FAERS Safety Report 26086934 (Version 1)
Quarter: 2025Q4

REPORT INFORMATION
  Report Type: Spontaneous
  Country: RS (occurrence: RS)
  Receive Date: 20251125
  Receipt Date: 20251125
  Transmission Date: 20260119
  Serious: Yes (Hospitalization)
  Sender: MERCK SHARP & DOHME LLC
  Company Number: RS-009507513-2352311

PATIENT
  Age: 28 Year
  Sex: Male

DRUGS (2)
  1. DELSTRIGO [Suspect]
     Active Substance: DORAVIRINE\LAMIVUDINE\TENOFOVIR DISOPROXIL FUMARATE
     Dates: start: 202407
  2. Benzathine-benzylpenicillin [Concomitant]
     Dates: start: 202407

REACTIONS (10)
  - Herpes simplex meningitis [Unknown]
  - Human papilloma virus test positive [Unknown]
  - Red blood cells urine positive [Recovered/Resolved]
  - Body mass index increased [Unknown]
  - Flank pain [Recovered/Resolved]
  - Glomerular filtration rate abnormal [Recovering/Resolving]
  - Blood cholesterol abnormal [Unknown]
  - Blood triglycerides abnormal [Unknown]
  - Cardiovascular examination abnormal [Unknown]
  - High density lipoprotein abnormal [Unknown]

NARRATIVE: CASE EVENT DATE: 20240901
